FAERS Safety Report 9390842 (Version 2)
Quarter: 2013Q3

REPORT INFORMATION
  Report Type: Report from Study
  Country: DE (occurrence: DE)
  Receive Date: 20130709
  Receipt Date: 20130716
  Transmission Date: 20140515
  Serious: Yes (Hospitalization, Other)
  Sender: FDA-Public Use
  Company Number: PHHY2013DE064113

PATIENT
  Sex: Male

DRUGS (11)
  1. EXELON PATCH [Suspect]
     Indication: DEMENTIA ALZHEIMER^S TYPE
     Dosage: 4.6 MG, DAILY
     Route: 062
     Dates: start: 20130514, end: 2013
  2. RAMIIPIL [Concomitant]
     Indication: HYPERTENSION
     Dosage: 10 MG DAILY
     Route: 048
  3. TAMSULOSIN [Concomitant]
     Indication: BENIGN PROSTATIC HYPERPLASIA
     Dosage: 0.4MG DAILY
     Route: 048
  4. L-THYROXINE [Concomitant]
     Indication: HYPOTHYROIDISM
     Dosage: 75 UG, DAILY
     Route: 048
  5. PANTOPRAZOLE [Concomitant]
     Dosage: 1 DF, DAILY
  6. SIMVASTATINE [Concomitant]
     Dosage: 1 DF, DAILY
  7. ALLOPURINOL [Concomitant]
     Dosage: 0.5 DF, DAILY
  8. CORVATON [Concomitant]
     Dosage: 1 DF, DAILY
  9. METOPROLOL SUCCINATE [Concomitant]
     Dosage: 2 DF, DAILY
  10. MARCUMAR [Concomitant]
     Indication: ATRIAL FIBRILLATION
     Dosage: ACCORDING INR
     Route: 048
  11. TORASEMIDE [Concomitant]
     Dosage: 1 DF, DAILY

REACTIONS (12)
  - Pneumonia [Recovered/Resolved]
  - Cough [Recovered/Resolved]
  - Haemoptysis [Recovered/Resolved]
  - Respiratory failure [Recovered/Resolved]
  - Asthenia [Recovered/Resolved]
  - Renal cyst [Not Recovered/Not Resolved]
  - Pleural effusion [Recovered/Resolved]
  - Nausea [Recovered/Resolved]
  - Pancreatic steatosis [Not Recovered/Not Resolved]
  - Atrial fibrillation [Recovered/Resolved]
  - Hypertension [Unknown]
  - Dizziness [Not Recovered/Not Resolved]
